FAERS Safety Report 7006633-0 (Version None)
Quarter: 2010Q3

REPORT INFORMATION
  Report Type: 
  Country: None (occurrence: None)
  Receive Date: 20100921
  Receipt Date: 20100921
  Transmission Date: 20110219
  Serious: Yes (Other)
  Sender: FDA-Public Use
  Company Number: None

PATIENT
  Sex: Male
  Weight: 84.9134 kg

DRUGS (2)
  1. RITUXAN [Suspect]
     Indication: NON-HODGKIN'S LYMPHOMA
     Dosage: 757MG/4WKS/IV
     Route: 042
     Dates: start: 20100920
  2. RITUXAN [Suspect]

REACTIONS (4)
  - CHILLS [None]
  - INFUSION RELATED REACTION [None]
  - SINUS CONGESTION [None]
  - THROAT IRRITATION [None]
